FAERS Safety Report 8934907 (Version 4)
Quarter: 2013Q3

REPORT INFORMATION
  Report Type: Spontaneous
  Country: US (occurrence: US)
  Receive Date: 20121129
  Receipt Date: 20130814
  Transmission Date: 20140515
  Serious: Yes (Other)
  Sender: FDA-Public Use
  Company Number: US-UCBSA-071992

PATIENT
  Age: 53 Year
  Sex: Female
  Weight: 58.9 kg

DRUGS (6)
  1. CIMZIA [Suspect]
     Indication: RHEUMATOID ARTHRITIS
     Route: 058
     Dates: start: 20121121
  2. CIMZIA [Suspect]
     Indication: RHEUMATOID ARTHRITIS
     Dates: start: 20120815, end: 2012
  3. PEPCID [Concomitant]
     Route: 048
  4. VITAMIN B [Concomitant]
     Dosage: ONE TAB DAILY
     Route: 048
  5. VITAMIN C [Concomitant]
     Dosage: 1 TAB
     Route: 048
  6. DICLOFENAC [Concomitant]
     Indication: RHEUMATOID ARTHRITIS
     Route: 048

REACTIONS (1)
  - Onychomycosis [Recovering/Resolving]
